FAERS Safety Report 12885493 (Version 3)
Quarter: 2017Q1

REPORT INFORMATION
  Report Type: Spontaneous
  Country: US (occurrence: US)
  Receive Date: 20161026
  Receipt Date: 20170117
  Transmission Date: 20170428
  Serious: No
  Sender: FDA-Public Use
  Company Number: US-PFIZER INC-2016496605

PATIENT
  Age: 64 Year
  Sex: Female
  Weight: 69 kg

DRUGS (2)
  1. XANAX [Suspect]
     Active Substance: ALPRAZOLAM
     Indication: ANXIETY
     Dosage: 1.5 MG (3X 0.5 MG TABLET), 1X/DAY AT NIGHT
     Route: 048
     Dates: start: 2001
  2. XANAX [Suspect]
     Active Substance: ALPRAZOLAM
     Indication: DEPRESSION
     Dosage: 5 MG, 4X/DAY
     Route: 048
     Dates: start: 199910

REACTIONS (5)
  - Therapeutic response unexpected [Recovered/Resolved]
  - Pre-existing condition improved [Recovered/Resolved]
  - Somnolence [Not Recovered/Not Resolved]
  - Fatigue [Recovered/Resolved]
  - Overdose [Unknown]
